FAERS Safety Report 9433775 (Version 2)
Quarter: 2013Q3

REPORT INFORMATION
  Report Type: Spontaneous
  Country: US (occurrence: US)
  Receive Date: 20130731
  Receipt Date: 20130804
  Transmission Date: 20140515
  Serious: No
  Sender: FDA-Public Use
  Company Number: US-ASTRAZENECA-2013SE51732

PATIENT
  Age: 94 Year
  Sex: Female
  Weight: 59 kg

DRUGS (8)
  1. SEROQUEL [Suspect]
     Indication: SLEEP DISORDER
     Route: 048
     Dates: start: 20130702
  2. SEROQUEL [Suspect]
     Indication: CONFUSIONAL STATE
     Route: 048
     Dates: start: 20130702
  3. SEROQUEL [Suspect]
     Indication: SLEEP DISORDER
     Route: 048
  4. SEROQUEL [Suspect]
     Indication: CONFUSIONAL STATE
     Route: 048
  5. HAZAR [Concomitant]
     Indication: BLOOD PRESSURE ABNORMAL
  6. NEUROTIN [Concomitant]
     Indication: ARTHRALGIA
  7. DOXYCYCLINE [Concomitant]
     Indication: ROSACEA
     Dosage: UNKNOWN
  8. OTHER MEDICATIONS [Concomitant]

REACTIONS (7)
  - Confusional state [Unknown]
  - Dementia [Unknown]
  - Middle insomnia [Unknown]
  - Somnolence [Unknown]
  - Intentional drug misuse [Unknown]
  - Off label use [Unknown]
  - Off label use [Unknown]
